FAERS Safety Report 4862573-4 (Version None)
Quarter: 2005Q4

REPORT INFORMATION
  Report Type: 
  Country: None (occurrence: None)
  Receive Date: 20051221
  Receipt Date: 20051220
  Transmission Date: 20060501
  Serious: Yes (Hospitalization)
  Sender: FDA-Public Use
  Company Number: FR-GLAXOSMITHKLINE-B0404283A

PATIENT
  Age: 40 Year
  Sex: Female

DRUGS (1)
  1. CLAMOXYL [Suspect]
     Indication: TOOTHACHE
     Dosage: 1G SINGLE DOSE
     Route: 048
     Dates: start: 20051127, end: 20051127

REACTIONS (5)
  - ERYTHEMA [None]
  - FACE OEDEMA [None]
  - FLUSHING [None]
  - LOCALISED OEDEMA [None]
  - PALPITATIONS [None]
